FAERS Safety Report 7430452-4 (Version None)
Quarter: 2011Q2

REPORT INFORMATION
  Report Type: 
  Country: None (occurrence: None)
  Receive Date: 20110421
  Receipt Date: 20100824
  Transmission Date: 20111010
  Serious: No
  Sender: FDA-Public Use
  Company Number: US-ASTRAZENECA-2005UW16806

PATIENT
  Age: 831 Month
  Sex: Female
  Weight: 77.6 kg

DRUGS (16)
  1. METAMUCIL-2 [Concomitant]
  2. TOPROL-XL [Suspect]
     Route: 048
  3. SYNTHROID [Concomitant]
     Indication: HYPOTHYROIDISM
  4. COLCHICINE [Concomitant]
  5. TOPROL-XL [Suspect]
     Route: 048
     Dates: start: 20050901
  6. ZANTAC [Concomitant]
  7. TOPROL-XL [Suspect]
     Indication: HYPERTENSION
     Route: 048
  8. METFORMIN [Concomitant]
     Indication: TYPE 2 DIABETES MELLITUS
  9. ALLOPURINOL [Concomitant]
     Indication: GOUT
  10. ESTROGENIC SUBSTANCE [Concomitant]
  11. TOPROL-XL [Suspect]
     Route: 048
  12. PEPCID OTC [Concomitant]
  13. TOPROL-XL [Suspect]
     Route: 048
  14. TOPROL-XL [Suspect]
     Route: 048
  15. ATACAND [Suspect]
     Route: 048
  16. VITAMIN TAB [Concomitant]

REACTIONS (12)
  - PRURITUS [None]
  - ABDOMINAL PAIN [None]
  - MUSCULOSKELETAL CHEST PAIN [None]
  - GOUT [None]
  - DRUG HYPERSENSITIVITY [None]
  - PAIN IN EXTREMITY [None]
  - EXERCISE ELECTROCARDIOGRAM ABNORMAL [None]
  - FATIGUE [None]
  - OEDEMA [None]
  - CHOLECYSTITIS [None]
  - BURNING SENSATION [None]
  - ARTHRALGIA [None]
